FAERS Safety Report 7275033-0 (Version None)
Quarter: 2011Q1

REPORT INFORMATION
  Report Type: 
  Country: None (occurrence: None)
  Receive Date: 20110204
  Receipt Date: 20110126
  Transmission Date: 20110831
  Serious: Yes (Hospitalization, Other)
  Sender: FDA-Public Use
  Company Number: FR-ROCHE-751450

PATIENT
  Sex: Female
  Weight: 71 kg

DRUGS (9)
  1. TEMOZOLOMIDE [Suspect]
     Indication: GLIOBLASTOMA
     Dosage: DATE OF LAST DOSE PRIOR TO SAE: 14 JANUARY 2011, CUMULATIVE DOSE ADMINISTERED: 1300 MG
     Route: 048
     Dates: start: 20110105
  2. MEDROL [Concomitant]
     Route: 048
     Dates: start: 20100801
  3. MANNITOL [Concomitant]
     Route: 042
     Dates: start: 20101130
  4. PROPRANOLOL [Concomitant]
     Indication: TACHYCARDIA
     Route: 048
     Dates: start: 20000101
  5. NEXIUM [Concomitant]
     Indication: PROPHYLAXIS
     Route: 048
     Dates: start: 20100316
  6. DEPAKENE [Concomitant]
     Indication: EPILEPSY
     Route: 042
     Dates: start: 20101109
  7. IRINOTECAN HCL [Suspect]
     Indication: GLIOBLASTOMA
     Dosage: DATE OF LAST DOSE PRIOR TO SAE: 22 NOVEMBER 2010, CUMULATIVE DOSE ADMINISTERED: 840 MG.
     Route: 042
     Dates: start: 20101011
  8. SOLU-MEDROL [Concomitant]
     Route: 042
     Dates: start: 20101230
  9. BEVACIZUMAB [Suspect]
     Indication: GLIOBLASTOMA
     Dosage: DATE OF LAST DOSE PRIOR TO SAE: 05 JANUARY 2011, CUMULATIVE DOSE ADMINISTERED: 3550 MG.INTERRUPTED
     Route: 042
     Dates: start: 20101011

REACTIONS (2)
  - PARTIAL SEIZURES [None]
  - INTRA-ABDOMINAL HAEMATOMA [None]
